APPROVED DRUG PRODUCT: PENTAMIDINE ISETHIONATE
Active Ingredient: PENTAMIDINE ISETHIONATE
Strength: 300MG/VIAL
Dosage Form/Route: INJECTABLE;INJECTION
Application: A073479 | Product #001
Applicant: HOSPIRA INC
Approved: Jun 30, 1992 | RLD: No | RS: No | Type: DISCN